FAERS Safety Report 8108055-8 (Version None)
Quarter: 2012Q1

REPORT INFORMATION
  Report Type: 
  Country: None (occurrence: None)
  Receive Date: 20120202
  Receipt Date: 20120127
  Transmission Date: 20120608
  Serious: Yes (Other)
  Sender: FDA-Public Use
  Company Number: FR-PFIZER INC-2012023993

PATIENT
  Sex: Female

DRUGS (2)
  1. NEURONTIN [Suspect]
     Dosage: 500 MG, 1X/DAY
  2. NEURONTIN [Suspect]
     Indication: LYME DISEASE
     Dosage: 300 MG, 1X/DAY IN EVENING
     Dates: start: 20110714

REACTIONS (6)
  - PALATAL DISORDER [None]
  - LIP DISCOLOURATION [None]
  - BURNING SENSATION [None]
  - TONGUE DISORDER [None]
  - DRY MOUTH [None]
  - LIP SWELLING [None]
